FAERS Safety Report 4842900-4 (Version None)
Quarter: 2005Q4

REPORT INFORMATION
  Report Type: 
  Country: None (occurrence: None)
  Receive Date: 20051129
  Receipt Date: 20051117
  Transmission Date: 20060501
  Serious: Yes (Other)
  Sender: FDA-Public Use
  Company Number: 12907

PATIENT
  Age: 79 Year
  Sex: Male

DRUGS (10)
  1. AMIODARONE HCL [Suspect]
     Indication: ATRIAL FIBRILLATION
     Dosage: 200 MG FREQ UNK PO
     Route: 048
     Dates: start: 20040101, end: 20051025
  2. LYRICA [Suspect]
     Indication: NEURALGIA
     Dosage: 75 MG BID PO
     Route: 048
     Dates: start: 20051013, end: 20051022
  3. ORAMORPH SR [Concomitant]
  4. ZOMORPH [Concomitant]
  5. WARFARIN SODIUM [Concomitant]
  6. CO-DANTHRAMER [Concomitant]
  7. CLOPIDOGREL [Concomitant]
  8. ISMN [Concomitant]
  9. SIMVASTATIN [Concomitant]
  10. FUROSEMIDE [Concomitant]

REACTIONS (5)
  - ATRIOVENTRICULAR BLOCK COMPLETE [None]
  - BLISTER [None]
  - DRUG INTERACTION [None]
  - RASH ERYTHEMATOUS [None]
  - SKIN OEDEMA [None]
